FAERS Safety Report 8219475-5 (Version None)
Quarter: 2012Q1

REPORT INFORMATION
  Report Type: 
  Country: None (occurrence: None)
  Receive Date: 20120319
  Receipt Date: 20120312
  Transmission Date: 20120608
  Serious: No
  Sender: FDA-Public Use
  Company Number: US-PFIZER INC-2012008554

PATIENT
  Sex: Female
  Weight: 59 kg

DRUGS (9)
  1. CALCIUM 600+VITAMIN D [Concomitant]
     Indication: OSTEOPOROSIS
     Dosage: UNK
  2. VITAMIN D [Concomitant]
     Indication: OSTEOPOROSIS
     Dosage: 1000 IU, DAILY
  3. EVISTA [Concomitant]
     Indication: OSTEOPOROSIS
     Dosage: 60 MG, DAILY
  4. ATORVASTATIN CALCIUM [Suspect]
     Indication: HYPERCHOLESTEROLAEMIA
     Dosage: 10 MG, 1X/DAY
     Route: 048
     Dates: start: 20111221, end: 20120110
  5. FUROSEMIDE [Concomitant]
     Indication: BLOOD PRESSURE ABNORMAL
     Dosage: 20 MG, DAILY
  6. ATENOLOL [Concomitant]
     Indication: BLOOD PRESSURE ABNORMAL
     Dosage: 100 MG, DAILY
  7. ASPIRIN [Concomitant]
     Indication: BLOOD PRESSURE ABNORMAL
     Dosage: 81MG, UNK
  8. DIOVAN [Concomitant]
     Indication: BLOOD PRESSURE ABNORMAL
     Dosage: 160 MG, 2X/DAY
     Route: 048
  9. TERAZOSIN [Concomitant]
     Indication: BLOOD PRESSURE ABNORMAL
     Dosage: 4 MG, 2X/DAY

REACTIONS (3)
  - DYSPEPSIA [None]
  - NAUSEA [None]
  - ASTHENIA [None]
